FAERS Safety Report 7112666-6 (Version None)
Quarter: 2010Q4

REPORT INFORMATION
  Report Type: 
  Country: None (occurrence: None)
  Receive Date: 20101119
  Receipt Date: 20101105
  Transmission Date: 20110411
  Serious: Yes (Life-Threatening)
  Sender: FDA-Public Use
  Company Number: PHHY2010US75468

PATIENT
  Sex: Female

DRUGS (7)
  1. DIOVAN [Suspect]
     Dosage: 320 MG, 0.5 TABLET THRICE DAILY
  2. AMBIEN [Suspect]
     Dosage: UNK
  3. SULINDAC [Concomitant]
  4. METFORMIN HCL [Concomitant]
  5. GLIPIZIDE [Concomitant]
  6. ADVAIR DISKUS 100/50 [Concomitant]
  7. PROPAPAP [Concomitant]

REACTIONS (13)
  - CHEST DISCOMFORT [None]
  - DYSPNOEA [None]
  - FEELING ABNORMAL [None]
  - FEELING COLD [None]
  - FEELING HOT [None]
  - HEADACHE [None]
  - HYPERHIDROSIS [None]
  - MALAISE [None]
  - MUSCLE RIGIDITY [None]
  - PRURITUS GENERALISED [None]
  - SWELLING FACE [None]
  - TREATMENT NONCOMPLIANCE [None]
  - TREMOR [None]
